FAERS Safety Report 7374061-4 (Version None)
Quarter: 2011Q1

REPORT INFORMATION
  Report Type: 
  Country: None (occurrence: None)
  Receive Date: 20110325
  Receipt Date: 20110313
  Transmission Date: 20110831
  Serious: Yes (Death, Other)
  Sender: FDA-Public Use
  Company Number: US-ENDO PHARMACEUTICALS INC.-OPIR20100034

PATIENT
  Age: 19 Year
  Sex: Male

DRUGS (5)
  1. OPANA [Suspect]
     Indication: DRUG ABUSE
     Dosage: UNKNOWN
     Route: 048
  2. CLONAZEPAM [Suspect]
     Dosage: UNKNOWN
     Route: 048
  3. SEROQUEL [Suspect]
     Indication: ANXIETY
     Dosage: 3 PILLS
     Route: 048
     Dates: start: 20100106
  4. MARIJUANA [Suspect]
     Indication: DRUG ABUSE
  5. CYMBALTA [Suspect]
     Dosage: UNKNOWN
     Route: 048

REACTIONS (3)
  - DRUG ABUSE [None]
  - DRUG DIVERSION [None]
  - OVERDOSE [None]
